FAERS Safety Report 18790375 (Version 1)
Quarter: 2021Q1

REPORT INFORMATION
  Report Type: Spontaneous
  Country: US (occurrence: US)
  Receive Date: 20210126
  Receipt Date: 20210126
  Transmission Date: 20210419
  Serious: Yes (Other)
  Sender: FDA-Public Use
  Company Number: US-EMD SERONO-238895K07USA

PATIENT
  Age: 50 Year
  Sex: Female

DRUGS (1)
  1. REBIF [Suspect]
     Active Substance: INTERFERON BETA-1A
     Indication: MULTIPLE SCLEROSIS
     Dosage: REBIF PREFILLED SYRINGE
     Route: 058
     Dates: start: 20070907

REACTIONS (10)
  - Injection site reaction [Unknown]
  - Staphylococcal infection [Unknown]
  - Injection site haemorrhage [Unknown]
  - Stress [Unknown]
  - Injection site bruising [Unknown]
  - Impetigo [Unknown]
  - Confusional state [Recovering/Resolving]
  - Injection site erythema [Unknown]
  - Cognitive disorder [Recovering/Resolving]
  - Influenza like illness [Not Recovered/Not Resolved]

NARRATIVE: CASE EVENT DATE: 2007
